FAERS Safety Report 25828597 (Version 4)
Quarter: 2025Q4

REPORT INFORMATION
  Report Type: Other
  Country: US (occurrence: US)
  Receive Date: 20250922
  Receipt Date: 20251216
  Transmission Date: 20260117
  Serious: Yes (Other)
  Sender: TRAVERE THERAPEUTICS
  Company Number: US-TRAVERE-2025TVT01461

PATIENT
  Age: 38 Year
  Sex: Male

DRUGS (1)
  1. FILSPARI [Suspect]
     Active Substance: SPARSENTAN
     Indication: IgA nephropathy
     Dosage: 31-AUG-2027
     Route: 048

REACTIONS (5)
  - Gastric neoplasm [Unknown]
  - Blood pressure decreased [Unknown]
  - Antiphospholipid syndrome [Unknown]
  - Hepatic enzyme increased [None]
  - Heart rate increased [Unknown]
